FAERS Safety Report 18661539 (Version 1)
Quarter: 2020Q4

REPORT INFORMATION
  Report Type: Report from Study
  Country: JP (occurrence: JP)
  Receive Date: 20201224
  Receipt Date: 20201224
  Transmission Date: 20210114
  Serious: Yes (Hospitalization)
  Sender: FDA-Public Use
  Company Number: PHBS2000JP07507

PATIENT
  Age: 67 Year
  Sex: Male
  Weight: 51.7 kg

DRUGS (7)
  1. METHYLDOPA. [Concomitant]
     Active Substance: METHYLDOPA
     Indication: PRODUCT USED FOR UNKNOWN INDICATION
     Route: 065
  2. NIFEDIPINE. [Concomitant]
     Active Substance: NIFEDIPINE
     Indication: PRODUCT USED FOR UNKNOWN INDICATION
     Route: 065
  3. 1-(4-METHYLPHENYL)ETHYLNICOTINATE [Concomitant]
     Indication: PRODUCT USED FOR UNKNOWN INDICATION
     Dosage: UNK
     Route: 065
  4. PRAZOSIN. [Concomitant]
     Active Substance: PRAZOSIN
     Indication: PRODUCT USED FOR UNKNOWN INDICATION
     Route: 065
  5. MDT COMBI MB [DAPSONE] [Suspect]
     Active Substance: DAPSONE
  6. MDT COMBI MB [CLOFAZIMINE] [Suspect]
     Active Substance: CLOFAZIMINE
     Indication: LEPROSY
     Dosage: CLOFAZIME: 100 MG, DAPSONE: UNK, RIFAMPICIN: UNK
     Route: 048
     Dates: start: 19970818, end: 19991118
  7. MDT COMBI MB [RIFAMPICIN] [Suspect]
     Active Substance: RIFAMPIN

REACTIONS (12)
  - Haemoglobin decreased [Recovered/Resolved]
  - Thrombocytopenia [Recovered/Resolved]
  - Anaemia [Recovered/Resolved]
  - Alanine aminotransferase increased [Recovered/Resolved]
  - Red blood cell count decreased [Recovered/Resolved]
  - Upper respiratory tract infection [Recovered/Resolved]
  - Arthralgia [Recovered/Resolved]
  - Pigmentation disorder [Recovering/Resolving]
  - Aspartate aminotransferase increased [Recovered/Resolved]
  - Leukopenia [Recovered/Resolved]
  - Haematocrit decreased [Recovered/Resolved]
  - Platelet count decreased [Recovered/Resolved]

NARRATIVE: CASE EVENT DATE: 19971105
